FAERS Safety Report 8008508-7 (Version None)
Quarter: 2011Q4

REPORT INFORMATION
  Report Type: 
  Country: None (occurrence: None)
  Receive Date: 20111227
  Receipt Date: 20111219
  Transmission Date: 20120403
  Serious: Yes (Other)
  Sender: FDA-Public Use
  Company Number: FR-ROCHE-1023848

PATIENT
  Sex: Male

DRUGS (11)
  1. MABTHERA [Suspect]
     Indication: B-CELL LYMPHOMA
     Route: 042
     Dates: start: 20111125, end: 20111125
  2. CYCLOPHOSPHAMIDE [Concomitant]
     Dates: start: 20111216
  3. ADRIAMYCIN PFS [Concomitant]
     Route: 042
     Dates: start: 20111125
  4. SOLU-MEDROL [Concomitant]
  5. CYCLOPHOSPHAMIDE [Concomitant]
     Route: 042
     Dates: start: 20111125
  6. PREDNISONE [Concomitant]
     Dates: start: 20111216
  7. PREDNISONE [Concomitant]
     Route: 042
     Dates: start: 20111125
  8. ONCOVIN [Concomitant]
     Route: 042
     Dates: start: 20111125
  9. POLARAMINE [Concomitant]
  10. ONCOVIN [Concomitant]
     Dates: start: 20111216
  11. ADRIAMYCIN PFS [Concomitant]
     Dates: start: 20111216

REACTIONS (5)
  - ARTHRALGIA [None]
  - PRURITUS [None]
  - DYSPHAGIA [None]
  - ERYTHEMA [None]
  - INFUSION RELATED REACTION [None]
